FAERS Safety Report 5689676-9 (Version None)
Quarter: 2008Q1

REPORT INFORMATION
  Report Type: 
  Country: None (occurrence: None)
  Receive Date: 20080328
  Receipt Date: 20080318
  Transmission Date: 20080703
  Serious: Yes (Hospitalization)
  Sender: FDA-Public Use
  Company Number: 232669J08USA

PATIENT
  Age: 43 Year
  Sex: Female

DRUGS (7)
  1. REBIF [Suspect]
     Indication: MULTIPLE SCLEROSIS
     Dosage: 44 MCG, 3 IN 1 WEEKS, SUBCUTANEOUS
     Route: 058
     Dates: start: 20070417
  2. EFFEXOR [Concomitant]
  3. BACLOFEN [Concomitant]
  4. MIRAPEX [Concomitant]
  5. CLONAZEPAM [Concomitant]
  6. OXYBUTYNIN CHLORIDE [Concomitant]
  7. METOPROLOL TARTRATE [Concomitant]

REACTIONS (6)
  - BLOOD DISORDER [None]
  - CYSTITIS [None]
  - DEHYDRATION [None]
  - INCONTINENCE [None]
  - INFECTION [None]
  - SOMNOLENCE [None]
